FAERS Safety Report 12716162 (Version 2)
Quarter: 2016Q3

REPORT INFORMATION
  Report Type: Report from Study
  Country: PA (occurrence: PA)
  Receive Date: 20160906
  Receipt Date: 20160915
  Transmission Date: 20161109
  Serious: Yes (Other)
  Sender: FDA-Public Use
  Company Number: PHHY2016PA120000

PATIENT
  Sex: Male
  Weight: 156 kg

DRUGS (2)
  1. INSULIN [Concomitant]
     Active Substance: INSULIN NOS
     Indication: DIABETES MELLITUS
     Route: 065
  2. SANDOSTATIN LAR DEPOT [Suspect]
     Active Substance: OCTREOTIDE ACETATE
     Indication: PITUITARY TUMOUR
     Route: 065

REACTIONS (6)
  - Blindness unilateral [Unknown]
  - Pterygium [Unknown]
  - Blood glucose decreased [Unknown]
  - Dizziness [Unknown]
  - Feeling drunk [Unknown]
  - Visual acuity reduced [Unknown]
